FAERS Safety Report 11993930 (Version 2)
Quarter: 2016Q1

REPORT INFORMATION
  Report Type: Spontaneous
  Country: FR (occurrence: FR)
  Receive Date: 20160203
  Receipt Date: 20160213
  Transmission Date: 20160526
  Serious: Yes (Hospitalization)
  Sender: FDA-Public Use
  Company Number: FR-ABBVIE-16K-056-1549496-00

PATIENT
  Age: 12 Year
  Sex: Male

DRUGS (2)
  1. HUMIRA [Suspect]
     Active Substance: ADALIMUMAB
     Route: 058
     Dates: start: 20150205
  2. HUMIRA [Suspect]
     Active Substance: ADALIMUMAB
     Indication: CHRONIC RECURRENT MULTIFOCAL OSTEOMYELITIS
     Route: 058
     Dates: start: 2013

REACTIONS (10)
  - Staphylococcal infection [Unknown]
  - Osteomyelitis [Unknown]
  - Superinfection bacterial [Unknown]
  - Nasal herpes [Unknown]
  - Necrosis [Unknown]
  - Hypersensitivity vasculitis [Unknown]
  - Complement factor abnormal [Unknown]
  - Herpes zoster [Recovered/Resolved]
  - Hypersensitivity vasculitis [Unknown]
  - Coagulation factor VIII level [Unknown]

NARRATIVE: CASE EVENT DATE: 201506
